FAERS Safety Report 19412653 (Version 1)
Quarter: 2021Q2

REPORT INFORMATION
  Report Type: Spontaneous
  Country: NL (occurrence: NL)
  Receive Date: 20210614
  Receipt Date: 20210614
  Transmission Date: 20210717
  Serious: Yes (Hospitalization)
  Sender: FDA-Public Use
  Company Number: NL-ACCORD-227769

PATIENT
  Sex: Male
  Weight: 97 kg

DRUGS (1)
  1. METHOTREXATE. [Suspect]
     Active Substance: METHOTREXATE
     Indication: RHEUMATOID ARTHRITIS
     Dosage: 1 DD 1.5, STRENGTH 10 MG
     Dates: start: 20150923

REACTIONS (2)
  - C-reactive protein normal [Recovering/Resolving]
  - Immunosuppression [Recovering/Resolving]
